FAERS Safety Report 12388382 (Version 5)
Quarter: 2017Q1

REPORT INFORMATION
  Report Type: Report from Study
  Country: CA (occurrence: CA)
  Receive Date: 20160520
  Receipt Date: 20170316
  Transmission Date: 20170428
  Serious: Yes (Other)
  Sender: FDA-Public Use
  Company Number: PHHY2012CA127441

PATIENT
  Age: 66 Year
  Sex: Female

DRUGS (13)
  1. XARELTO [Concomitant]
     Active Substance: RIVAROXABAN
     Indication: PRODUCT USED FOR UNKNOWN INDICATION
     Dosage: UNK
     Route: 065
  2. COUMADIN [Suspect]
     Active Substance: WARFARIN SODIUM
     Indication: PRODUCT USED FOR UNKNOWN INDICATION
     Dosage: UNK
     Route: 065
  3. GLEEVEC [Suspect]
     Active Substance: IMATINIB MESYLATE
     Indication: CHRONIC MYELOID LEUKAEMIA
     Dosage: 400 MG, QD
     Route: 048
     Dates: start: 20100407
  4. PROMETRIUM [Concomitant]
     Active Substance: PROGESTERONE
     Indication: PRODUCT USED FOR UNKNOWN INDICATION
     Dosage: UNK
     Route: 065
  5. VITAMIN B12 [Concomitant]
     Active Substance: CYANOCOBALAMIN
     Indication: VITAMIN B12 DEFICIENCY
     Dosage: 1000 UG, QD
     Route: 060
     Dates: start: 201211
  6. GLEEVEC [Suspect]
     Active Substance: IMATINIB MESYLATE
     Dosage: 300 MG, QD
     Route: 048
     Dates: end: 20170119
  7. PROGESTERONE. [Concomitant]
     Active Substance: PROGESTERONE
     Indication: PRODUCT USED FOR UNKNOWN INDICATION
     Dosage: 100 MG, UNK
     Route: 065
  8. IMOVANE [Concomitant]
     Active Substance: ZOPICLONE
     Indication: PRODUCT USED FOR UNKNOWN INDICATION
     Dosage: UNK
     Route: 065
  9. IMATINIB TEVA [Suspect]
     Active Substance: IMATINIB
     Indication: CHRONIC MYELOID LEUKAEMIA
     Dosage: UNK
     Route: 065
     Dates: start: 20170120
  10. ESTROGEN [Concomitant]
     Indication: PRODUCT USED FOR UNKNOWN INDICATION
     Dosage: UNK
     Route: 065
  11. AVAPRO [Concomitant]
     Active Substance: IRBESARTAN
     Indication: PRODUCT USED FOR UNKNOWN INDICATION
     Dosage: 15 MG, UNK
     Route: 065
  12. FOLATE [Concomitant]
     Active Substance: FOLATE SODIUM
     Indication: FOLATE DEFICIENCY
     Dosage: 400 UG, QD
     Route: 065
     Dates: start: 201211
  13. GLEEVEC [Suspect]
     Active Substance: IMATINIB MESYLATE
     Dosage: 400 MG, QHS
     Route: 048

REACTIONS (44)
  - Haematocrit decreased [Unknown]
  - Nasopharyngitis [Unknown]
  - Fluid retention [Unknown]
  - Insomnia [Unknown]
  - Pyrexia [Unknown]
  - Oedema peripheral [Unknown]
  - Abdominal distension [Unknown]
  - Intentional self-injury [Unknown]
  - Blood pressure increased [Recovering/Resolving]
  - Chills [Unknown]
  - Rash [Unknown]
  - Hypotension [Unknown]
  - Cardiac flutter [Unknown]
  - Laziness [Unknown]
  - Burning sensation [Unknown]
  - Haemoglobin decreased [Recovering/Resolving]
  - Fatigue [Recovered/Resolved]
  - Contusion [Recovering/Resolving]
  - Cough [Unknown]
  - Dyspnoea [Unknown]
  - Arrhythmia [Unknown]
  - Diarrhoea [Unknown]
  - Second primary malignancy [Unknown]
  - Coagulopathy [Unknown]
  - Memory impairment [Recovering/Resolving]
  - Pruritus [Unknown]
  - Atrial fibrillation [Unknown]
  - Squamous cell carcinoma [Unknown]
  - Eye haemorrhage [Unknown]
  - Arthralgia [Unknown]
  - Dizziness [Unknown]
  - Atrophic glossitis [Not Recovered/Not Resolved]
  - Platelet count decreased [Unknown]
  - Peripheral swelling [Unknown]
  - Feeling abnormal [Unknown]
  - Asthenia [Unknown]
  - Bone density decreased [Unknown]
  - Depressed mood [Unknown]
  - Musculoskeletal stiffness [Unknown]
  - Blood potassium increased [Unknown]
  - Myocardial infarction [Unknown]
  - Lip injury [Unknown]
  - Atrial flutter [Unknown]
  - Swelling [Recovering/Resolving]

NARRATIVE: CASE EVENT DATE: 201404
